FAERS Safety Report 21637080 (Version 1)
Quarter: 2022Q4

REPORT INFORMATION
  Report Type: Spontaneous
  Country: CN (occurrence: None)
  Receive Date: 20221124
  Receipt Date: 20221124
  Transmission Date: 20230113
  Serious: Yes (Other)
  Sender: FDA-Public Use
  Company Number: CN-ROCHE-3223433

PATIENT
  Age: 62 Year
  Sex: Male
  Weight: 52 kg

DRUGS (5)
  1. PERJETA [Suspect]
     Active Substance: PERTUZUMAB
     Indication: Invasive breast carcinoma
     Route: 041
     Dates: start: 20220913
  2. TRASTUZUMAB [Suspect]
     Active Substance: TRASTUZUMAB
     Indication: Invasive breast carcinoma
     Route: 041
     Dates: start: 20220913
  3. PACLITAXEL [Suspect]
     Active Substance: PACLITAXEL
     Indication: Invasive breast carcinoma
     Route: 041
     Dates: start: 20220913
  4. CISPLATIN [Suspect]
     Active Substance: CISPLATIN
     Indication: Invasive breast carcinoma
     Dosage: D1
     Route: 041
     Dates: start: 20220913
  5. CISPLATIN [Suspect]
     Active Substance: CISPLATIN
     Dosage: D2-D3
     Route: 041

REACTIONS (1)
  - Myelosuppression [Unknown]

NARRATIVE: CASE EVENT DATE: 20221010
